FAERS Safety Report 5425535-4 (Version None)
Quarter: 2007Q3

REPORT INFORMATION
  Report Type: 
  Country: None (occurrence: None)
  Receive Date: 20070824
  Receipt Date: 20070814
  Transmission Date: 20080115
  Serious: Yes (Other)
  Sender: FDA-Public Use
  Company Number: US-PFIZER INC-2007052340

PATIENT
  Sex: Female
  Weight: 53.636 kg

DRUGS (4)
  1. CHANTIX [Suspect]
     Indication: SMOKING CESSATION THERAPY
     Dosage: TEXT:EVERY DAY
     Dates: start: 20070501, end: 20070619
  2. EFFEXOR [Interacting]
     Dosage: DAILY DOSE:225MG
  3. TRAZODONE HCL [Concomitant]
     Indication: INSOMNIA
  4. PREMPRO [Concomitant]
     Indication: PREMATURE MENOPAUSE

REACTIONS (11)
  - ANXIETY [None]
  - CONSTIPATION [None]
  - COUGH [None]
  - DRUG INTERACTION [None]
  - DYSPHONIA [None]
  - MUSCLE TIGHTNESS [None]
  - MUSCULAR WEAKNESS [None]
  - PAIN [None]
  - PRURITUS [None]
  - RASH [None]
  - SKIN ULCER [None]
